FAERS Safety Report 22196151 (Version 1)
Quarter: 2023Q2

REPORT INFORMATION
  Report Type: Spontaneous
  Country: US (occurrence: US)
  Receive Date: 20230411
  Receipt Date: 20230411
  Transmission Date: 20230721
  Serious: No
  Sender: FDA-Public Use
  Company Number: US-INCYTE CORPORATION-2023IN002655

PATIENT

DRUGS (1)
  1. OPZELURA [Suspect]
     Active Substance: RUXOLITINIB PHOSPHATE
     Indication: Eye pruritus
     Dosage: 5 GRAM
     Route: 065

REACTIONS (3)
  - Eyelid irritation [Unknown]
  - Eyelid pain [Unknown]
  - Off label use [Unknown]
